FAERS Safety Report 7342024-0 (Version None)
Quarter: 2011Q1

REPORT INFORMATION
  Report Type: 
  Country: None (occurrence: None)
  Receive Date: 20110309
  Receipt Date: 20110224
  Transmission Date: 20110831
  Serious: Yes (Other)
  Sender: FDA-Public Use
  Company Number: NL-MYLANLABS-2011S1003765

PATIENT
  Age: 64 Year
  Sex: Male
  Weight: 75 kg

DRUGS (5)
  1. METOPROLOL SUCCINATE [Concomitant]
     Indication: PRODUCT USED FOR UNKNOWN INDICATION
     Dosage: DOSE NOT CHANGED- 1 TABLET
     Route: 048
     Dates: start: 20110101
  2. ACENOCOUMAROL [Concomitant]
     Indication: PRODUCT USED FOR UNKNOWN INDICATION
     Dosage: DOSE NOT CHANGED - VOLGENS DOSERING TD
     Route: 048
     Dates: start: 20081201
  3. PRAVASTATIN [Suspect]
     Indication: PROPHYLAXIS
     Dosage: 40MG DAAGS
     Route: 048
     Dates: start: 20090923, end: 20110202
  4. OMEPRAZOL PCH [Concomitant]
     Indication: PRODUCT USED FOR UNKNOWN INDICATION
     Dosage: DOSE NOT CHANGED - 1  TABLET
     Route: 048
     Dates: start: 20100601
  5. TAMSULOSINE HCL CF [Concomitant]
     Indication: PRODUCT USED FOR UNKNOWN INDICATION
     Dosage: DOSE NOT CHANGED -1 TABLET
     Route: 048
     Dates: start: 20100801

REACTIONS (1)
  - TENDON RUPTURE [None]
